FAERS Safety Report 5108654-1 (Version None)
Quarter: 2006Q3

REPORT INFORMATION
  Report Type: 
  Country: None (occurrence: None)
  Receive Date: 20060915
  Receipt Date: 20060901
  Transmission Date: 20061208
  Serious: Yes (Hospitalization, Other)
  Sender: FDA-Public Use
  Company Number: 2006AL002637

PATIENT
  Age: 10 Year
  Sex: Male

DRUGS (2)
  1. DICLOFENAC SODIUM [Suspect]
     Indication: BACK PAIN
     Dosage: 12/5 MG; QD
  2. MEFENAMIC ACID [Concomitant]

REACTIONS (7)
  - BACK PAIN [None]
  - BRAIN OEDEMA [None]
  - CONVULSION [None]
  - HYPERTENSIVE ENCEPHALOPATHY [None]
  - OEDEMA [None]
  - RENAL FAILURE ACUTE [None]
  - REVERSIBLE POSTERIOR LEUKOENCEPHALOPATHY SYNDROME [None]
